FAERS Safety Report 5886961-2 (Version None)
Quarter: 2008Q3

REPORT INFORMATION
  Report Type: 
  Country: None (occurrence: None)
  Receive Date: 20080917
  Receipt Date: 20080915
  Transmission Date: 20090109
  Serious: Yes (Other)
  Sender: FDA-Public Use
  Company Number: BR-B.I. PHARMACEUTICALS,INC./RIDGEFIELD-2008-BR-00026BR

PATIENT
  Sex: Male

DRUGS (1)
  1. ATROVENT [Suspect]
     Dosage: 1 ML= 20 DROPS= 0.250 MG
     Route: 048
     Dates: start: 20080915, end: 20080915

REACTIONS (1)
  - ACCIDENTAL OVERDOSE [None]
